FAERS Safety Report 15029515 (Version 1)
Quarter: 2018Q2

REPORT INFORMATION
  Report Type: Spontaneous
  Country: BR (occurrence: BR)
  Receive Date: 20180619
  Receipt Date: 20180619
  Transmission Date: 20180711
  Serious: Yes (Other)
  Sender: FDA-Public Use
  Company Number: BR-SAKK-2018SA152073AA

PATIENT
  Sex: Male

DRUGS (2)
  1. THYMOGLOBULINE [Suspect]
     Active Substance: LAPINE T-LYMPHOCYTE IMMUNE GLOBULIN
     Dosage: 75 MG, QD
     Route: 042
     Dates: start: 20180529, end: 20180529
  2. HYDROCORTISONE. [Concomitant]
     Active Substance: HYDROCORTISONE
     Dosage: 300 MG, QD
     Route: 042
     Dates: start: 20180529, end: 20180529

REACTIONS (5)
  - Muscle twitching [Unknown]
  - Nasopharyngitis [Unknown]
  - Hypertension [Unknown]
  - Paraesthesia [Unknown]
  - Pyrexia [Unknown]
